FAERS Safety Report 8380259-9 (Version None)
Quarter: 2012Q2

REPORT INFORMATION
  Report Type: 
  Country: None (occurrence: None)
  Receive Date: 20120523
  Receipt Date: 20120518
  Transmission Date: 20120825
  Serious: Yes (Other)
  Sender: FDA-Public Use
  Company Number: PHHY2012TR043119

PATIENT
  Sex: Male

DRUGS (1)
  1. SANDOSTATIN LAR [Suspect]
     Indication: ACROMEGALY
     Dosage: 30 MG, PER 28 DAYS

REACTIONS (5)
  - BLOOD GROWTH HORMONE INCREASED [None]
  - BLOOD CHOLESTEROL INCREASED [None]
  - INSULIN-LIKE GROWTH FACTOR INCREASED [None]
  - BLOOD GLUCOSE INCREASED [None]
  - MASS [None]
